FAERS Safety Report 5398403-4 (Version None)
Quarter: 2007Q3

REPORT INFORMATION
  Report Type: 
  Country: None (occurrence: None)
  Receive Date: 20070726
  Receipt Date: 20070323
  Transmission Date: 20080115
  Serious: No
  Sender: FDA-Public Use
  Company Number: US-AMGEN-KDL216611

PATIENT
  Sex: Female
  Weight: 52.6 kg

DRUGS (1)
  1. PROCRIT [Suspect]
     Indication: HIV INFECTION
     Route: 058
     Dates: start: 20061101, end: 20070101

REACTIONS (1)
  - IRON DEFICIENCY ANAEMIA [None]
